FAERS Safety Report 8961019 (Version 3)
Quarter: 2014Q3

REPORT INFORMATION
  Report Type: Report from Study
  Country: DE (occurrence: TR)
  Receive Date: 20121212
  Receipt Date: 20140709
  Transmission Date: 20150326
  Serious: Yes (Death, Hospitalization, Other)
  Sender: FDA-Public Use
  Company Number: DE-ACTELION-A-US2012-76151

PATIENT
  Age: 63 Year
  Sex: Male
  Weight: 80 kg

DRUGS (5)
  1. PULMICORT TURBUHALER [Concomitant]
     Active Substance: BUDESONIDE
  2. OXYGEN. [Concomitant]
     Active Substance: OXYGEN
  3. VENTAVIS [Suspect]
     Active Substance: ILOPROST
     Indication: PULMONARY HYPERTENSION
     Dosage: 2 ML, 6XDAY
     Route: 055
     Dates: start: 20121031, end: 20121204
  4. VENTOLIN [Concomitant]
     Active Substance: ALBUTEROL SULFATE
  5. COUMADIN [Concomitant]
     Active Substance: WARFARIN SODIUM

REACTIONS (8)
  - Cardiac procedure complication [Fatal]
  - Procedural haemorrhage [Unknown]
  - Tension [Unknown]
  - Anuria [Unknown]
  - Blood test abnormal [Recovered/Resolved]
  - Blood pressure decreased [Unknown]
  - Cough [Unknown]
  - Heart valve operation [Unknown]

NARRATIVE: CASE EVENT DATE: 20121104
